FAERS Safety Report 13100220 (Version 2)
Quarter: 2017Q1

REPORT INFORMATION
  Report Type: Spontaneous
  Country: PL (occurrence: PL)
  Receive Date: 20170110
  Receipt Date: 20170213
  Transmission Date: 20170428
  Serious: Yes (Hospitalization)
  Sender: FDA-Public Use
  Company Number: PL-B.I. PHARMACEUTICALS,INC./RIDGEFIELD-2017-BI-001236

PATIENT
  Age: 77 Year
  Sex: Male
  Weight: 71 kg

DRUGS (1)
  1. PRADAXA [Suspect]
     Active Substance: DABIGATRAN ETEXILATE MESYLATE
     Indication: PRODUCT USED FOR UNKNOWN INDICATION
     Route: 065

REACTIONS (7)
  - Peritonitis [Unknown]
  - Diarrhoea [Unknown]
  - Haemorrhage [Recovered/Resolved]
  - Appendicitis [Unknown]
  - Blood creatinine decreased [Unknown]
  - Orthopaedic procedure [Unknown]
  - Abdominal pain [Unknown]

NARRATIVE: CASE EVENT DATE: 201612
